FAERS Safety Report 6464338-9 (Version None)
Quarter: 2009Q4

REPORT INFORMATION
  Report Type: 
  Country: None (occurrence: None)
  Receive Date: 20091201
  Receipt Date: 20081103
  Transmission Date: 20100525
  Serious: No
  Sender: FDA-Public Use
  Company Number: US-AMGEN-KDL317270

PATIENT
  Sex: Female

DRUGS (1)
  1. ENBREL [Suspect]
     Indication: ANKYLOSING SPONDYLITIS
     Route: 058

REACTIONS (6)
  - BRONCHITIS [None]
  - FATIGUE [None]
  - INFLUENZA [None]
  - MALAISE [None]
  - PNEUMONIA [None]
  - SINUSITIS [None]
